FAERS Safety Report 8762782 (Version 3)
Quarter: 2012Q4

REPORT INFORMATION
  Report Type: Report from Study
  Country: DE (occurrence: DE)
  Receive Date: 20120830
  Receipt Date: 20121210
  Transmission Date: 20130627
  Serious: Yes (Other)
  Sender: FDA-Public Use
  Company Number: DE-BRISTOL-MYERS SQUIBB COMPANY-16880411

PATIENT
  Age: 50 Year
  Sex: Male
  Weight: 73 kg

DRUGS (6)
  1. ETOPOSIDE [Suspect]
     Indication: ACUTE MYELOID LEUKAEMIA
  2. TRETINOIN [Suspect]
     Indication: ACUTE MYELOID LEUKAEMIA
     Dosage: 1 DF = 90 Unit nos,Atra
     Route: 065
     Dates: start: 20120725, end: 20120821
  3. IDARUBICIN [Suspect]
     Indication: ACUTE MYELOID LEUKAEMIA
     Dosage: 1 DF = 22.56 Unit nos
     Dates: start: 20120719, end: 20120724
  4. CYTARABINE [Suspect]
     Indication: ACUTE MYELOID LEUKAEMIA
     Dates: start: 20120719, end: 20120724
  5. PEGFILGRASTIM [Suspect]
     Dates: start: 20120804, end: 20120804
  6. VORICONAZOLE [Suspect]
     Indication: ANTIFUNGAL TREATMENT
     Route: 048
     Dates: start: 20120717, end: 20120727

REACTIONS (1)
  - Hyperbilirubinaemia [Recovered/Resolved]
